FAERS Safety Report 22678708 (Version 3)
Quarter: 2025Q3

REPORT INFORMATION
  Report Type: Spontaneous
  Country: EU (occurrence: EU)
  Receive Date: 20230706
  Receipt Date: 20250825
  Transmission Date: 20251021
  Serious: Yes (Other)
  Sender: MYLAN
  Company Number: None

PATIENT
  Age: 78 Year
  Sex: Male

DRUGS (1)
  1. PREGABALIN [Suspect]
     Active Substance: PREGABALIN
     Indication: Product used for unknown indication

REACTIONS (10)
  - Angle closure glaucoma [Unknown]
  - Flat anterior chamber of eye [Unknown]
  - Cataract subcapsular [Unknown]
  - Intraocular pressure increased [Recovered/Resolved]
  - Conjunctival hyperaemia [Unknown]
  - Blepharospasm [Unknown]
  - Corneal oedema [Unknown]
  - Nausea [Unknown]
  - Vomiting [Unknown]
  - Pain [Unknown]

NARRATIVE: CASE EVENT DATE: 20230214
